FAERS Safety Report 6021795-X (Version None)
Quarter: 2008Q4

REPORT INFORMATION
  Report Type: 
  Country: None (occurrence: None)
  Receive Date: 20081229
  Receipt Date: 20081224
  Transmission Date: 20090506
  Serious: Yes (Hospitalization)
  Sender: FDA-Public Use
  Company Number: FR-WYE-H07419508

PATIENT
  Sex: Male

DRUGS (7)
  1. INIPOMP [Suspect]
     Route: 048
     Dates: start: 20080804, end: 20080816
  2. AUGMENTIN [Concomitant]
     Indication: BRONCHITIS
     Dosage: UNSPECIFIED
     Route: 048
     Dates: start: 20080804, end: 20080810
  3. LASILIX [Concomitant]
     Dosage: UNSPECIFIED
     Route: 048
  4. HEMIGOXINE NATIVELLE [Concomitant]
     Route: 048
     Dates: start: 20050501, end: 20080816
  5. PREVISCAN [Suspect]
     Dosage: UNSPECIFIED
     Route: 048
     Dates: start: 20050501
  6. PREVISCAN [Suspect]
     Route: 048
     Dates: end: 20080815
  7. DUPHALAC [Concomitant]
     Dosage: UNSPECIFIED
     Route: 048

REACTIONS (2)
  - DRUG INTERACTION [None]
  - INTERNATIONAL NORMALISED RATIO INCREASED [None]
